FAERS Safety Report 14610115 (Version 3)
Quarter: 2019Q2

REPORT INFORMATION
  Report Type: Spontaneous
  Country: US (occurrence: US)
  Receive Date: 20180307
  Receipt Date: 20190521
  Transmission Date: 20190711
  Serious: Yes (Other)
  Sender: FDA-Public Use
  Company Number: US-PFIZER INC-2018091250

PATIENT
  Age: 64 Year
  Sex: Male
  Weight: 120.2 kg

DRUGS (6)
  1. LYRICA [Suspect]
     Active Substance: PREGABALIN
     Indication: DIABETIC NEUROPATHY
     Dosage: 300 MG, DAILY
  2. LYRICA [Suspect]
     Active Substance: PREGABALIN
     Dosage: 3 DF, DAILY (3 A DAY)
  3. LYRICA [Suspect]
     Active Substance: PREGABALIN
     Dosage: UNK (LYRICA 50 MG BID AM 3 NOON, 300 MG @ HS)
  4. LYRICA [Suspect]
     Active Substance: PREGABALIN
     Dosage: 600 MG, DAILY (ONE IN THE MORNING, ONE IN THE AFTERNOON, AND TWO AT NIGHT AN HOUR BEFORE BED)
     Route: 048
     Dates: start: 2014
  5. LYRICA [Suspect]
     Active Substance: PREGABALIN
     Dosage: UNK (LYRICA 50 MG BID AM 3 NOON, 300 MG @ HS)
  6. LYRICA [Suspect]
     Active Substance: PREGABALIN
     Indication: PAIN IN EXTREMITY
     Dosage: 750 MG, DAILY
     Dates: start: 2012, end: 2013

REACTIONS (9)
  - Diarrhoea [Recovered/Resolved]
  - Hypersomnia [Unknown]
  - Weight decreased [Recovered/Resolved]
  - Sudden onset of sleep [Unknown]
  - Weight increased [Not Recovered/Not Resolved]
  - Peripheral coldness [Recovering/Resolving]
  - Eating disorder [Unknown]
  - Overdose [Recovered/Resolved]
  - Drug ineffective [Unknown]

NARRATIVE: CASE EVENT DATE: 2012
